FAERS Safety Report 21795918 (Version 1)
Quarter: 2022Q4

REPORT INFORMATION
  Report Type: Report from Study
  Country: US (occurrence: US)
  Receive Date: 20221229
  Receipt Date: 20221229
  Transmission Date: 20230112
  Serious: No
  Sender: FDA-Public Use
  Company Number: US-ABBVIE-4231540

PATIENT
  Age: 20 Year
  Sex: Female

DRUGS (1)
  1. HUMIRA [Suspect]
     Active Substance: ADALIMUMAB
     Indication: Psoriasis
     Route: 058
     Dates: start: 20221107

REACTIONS (4)
  - Influenza [Not Recovered/Not Resolved]
  - Ocular hyperaemia [Unknown]
  - Malaise [Unknown]
  - Eye swelling [Unknown]

NARRATIVE: CASE EVENT DATE: 20221208
